FAERS Safety Report 7503060-4 (Version None)
Quarter: 2011Q2

REPORT INFORMATION
  Report Type: 
  Country: None (occurrence: None)
  Receive Date: 20110518
  Receipt Date: 20110512
  Transmission Date: 20111010
  Serious: Yes (Hospitalization, Other)
  Sender: FDA-Public Use
  Company Number: 20109172

PATIENT
  Sex: Male

DRUGS (1)
  1. LIORESAL [Suspect]
     Indication: MUSCLE SPASTICITY
     Dosage: 414 MCG, DAILY, INTRATHECAL
     Route: 037

REACTIONS (5)
  - IMPLANT SITE HAEMATOMA [None]
  - DEVICE CONNECTION ISSUE [None]
  - INCORRECT DOSE ADMINISTERED BY DEVICE [None]
  - IMPLANT SITE SWELLING [None]
  - IMPLANT SITE CELLULITIS [None]
